FAERS Safety Report 10519789 (Version 1)
Quarter: 2014Q4

REPORT INFORMATION
  Report Type: Spontaneous
  Country: GB (occurrence: GB)
  Receive Date: 20141015
  Receipt Date: 20141015
  Transmission Date: 20150528
  Serious: Yes (Disabling)
  Sender: FDA-Public Use
  Company Number: GB-BRISTOL-MYERS SQUIBB COMPANY-21469846

PATIENT
  Age: 83 Year
  Sex: Male
  Weight: 69.85 kg

DRUGS (9)
  1. ALVERINE CITRATE [Concomitant]
     Active Substance: ALVERINE CITRATE
     Dates: start: 20140905, end: 20140906
  2. BETAMETHASONE VALERATE. [Concomitant]
     Active Substance: BETAMETHASONE VALERATE
     Dates: start: 20140620, end: 20140905
  3. CODEINE PHOSPHATE [Concomitant]
     Active Substance: CODEINE PHOSPHATE
     Dates: start: 20140827, end: 20140828
  4. DOUBLEBASE [Concomitant]
     Active Substance: ISOPROPYL MYRISTATE\PARAFFIN
     Dates: start: 20140620, end: 20140905
  5. HYDROXYZINE [Concomitant]
     Active Substance: HYDROXYZINE\HYDROXYZINE HYDROCHLORIDE
     Dates: start: 20140701, end: 20140924
  6. APIXABAN [Suspect]
     Active Substance: APIXABAN
     Dates: start: 20140827
  7. FEXOFENADINE HCL [Concomitant]
     Active Substance: FEXOFENADINE HYDROCHLORIDE
     Dates: start: 20140528, end: 20140727
  8. RAMIPRIL. [Concomitant]
     Active Substance: RAMIPRIL
     Dates: start: 20140701, end: 20140826
  9. ASPIRIN. [Concomitant]
     Active Substance: ASPIRIN
     Dates: start: 20140925

REACTIONS (4)
  - Cough [Unknown]
  - Fatigue [Unknown]
  - Nausea [Unknown]
  - Skin disorder [Unknown]

NARRATIVE: CASE EVENT DATE: 20140925
